FAERS Safety Report 9196279 (Version 2)
Quarter: 2013Q2

REPORT INFORMATION
  Report Type: Spontaneous
  Country: US (occurrence: None)
  Receive Date: 20120709
  Receipt Date: 20121107
  Transmission Date: 20140414
  Serious: No
  Sender: FDA-Public Use
  Company Number: 2012HGS-003484

PATIENT
  Sex: Female
  Weight: 42.18 kg

DRUGS (4)
  1. BENLYSTA [Suspect]
     Indication: SYSTEMIC LUPUS ERYTHEMATOSUS
     Dosage: 10 MG/KG, 1 IN 28 D, INTRAVENOUS DRIP
     Route: 041
     Dates: start: 20111128
  2. PREDNISONE (PREDNISONE) (PREDNISONE) [Concomitant]
  3. ZYPREXA (OLANZAPINE) [Concomitant]
  4. LEXAPRO (ESCITALOPRAM OXLATE) (ESCITALOPRAM OXALATE) [Concomitant]

REACTIONS (1)
  - Anxiety [None]
